FAERS Safety Report 7820237-9 (Version None)
Quarter: 2011Q4

REPORT INFORMATION
  Report Type: 
  Country: None (occurrence: None)
  Receive Date: 20111013
  Receipt Date: 20110930
  Transmission Date: 20120403
  Serious: Yes (Congenital Anomaly, Other)
  Sender: FDA-Public Use
  Company Number: AUR-APL-2010-00135

PATIENT
  Sex: Female
  Weight: 3.08 kg

DRUGS (3)
  1. ZIDOVUDINE [Suspect]
     Indication: HIV INFECTION
     Dosage: (600 MG, TRANSPLACENTAL
     Route: 064
  2. LAMIVUDINE [Suspect]
     Indication: HIV INFECTION
     Dosage: (300 MG) , TRANSPLACENTAL
     Route: 064
  3. VIRACEPT [Suspect]
     Indication: HIV INFECTION
     Dosage: (2500 MG), TRANSPLACENTAL
     Route: 064

REACTIONS (3)
  - PREMATURE BABY [None]
  - TRISOMY 21 [None]
  - MATERNAL DRUGS AFFECTING FOETUS [None]
